FAERS Safety Report 4269293-8 (Version None)
Quarter: 2004Q1

REPORT INFORMATION
  Report Type: 
  Country: None (occurrence: None)
  Receive Date: 20040109
  Receipt Date: 20040105
  Transmission Date: 20041129
  Serious: Yes (Other)
  Sender: FDA-Public Use
  Company Number: DSA_60372_2003

PATIENT
  Age: 48 Year
  Sex: Female

DRUGS (1)
  1. TONOPAN [Suspect]
     Indication: MIGRAINE
     Dosage: 1 TAB PRN PO
     Route: 048
     Dates: start: 20030315, end: 20031109

REACTIONS (4)
  - ARTHRALGIA [None]
  - HEART RATE INCREASED [None]
  - HYPOAESTHESIA [None]
  - SELF-MEDICATION [None]
